FAERS Safety Report 6016034-X (Version None)
Quarter: 2008Q4

REPORT INFORMATION
  Report Type: 
  Country: None (occurrence: None)
  Receive Date: 20081218
  Receipt Date: 20081205
  Transmission Date: 20090506
  Serious: Yes (Other)
  Sender: FDA-Public Use
  Company Number: PAR_02460_2008

PATIENT
  Age: 41 Year
  Sex: Male

DRUGS (4)
  1. METHYLPREDNISOLONE [Suspect]
     Indication: GLOMERULONEPHRITIS MEMBRANOPROLIFERATIVE
     Dosage: (48 MG ORAL)
     Route: 048
  2. ACETYLSALICYLIC ACID (UNKNOWN) [Concomitant]
  3. FUROSEMIDE [Concomitant]
  4. QUINAPRIL (UNKNOWN) [Concomitant]

REACTIONS (5)
  - ATRIAL FIBRILLATION [None]
  - BLOOD CHOLESTEROL INCREASED [None]
  - BLOOD TRIGLYCERIDES INCREASED [None]
  - LEFT VENTRICULAR HYPERTROPHY [None]
  - RETINOPATHY HYPERTENSIVE [None]
